FAERS Safety Report 5008744-8 (Version None)
Quarter: 2006Q2

REPORT INFORMATION
  Report Type: 
  Country: None (occurrence: None)
  Receive Date: 20060518
  Receipt Date: 20060511
  Transmission Date: 20061013
  Serious: Yes (Hospitalization)
  Sender: FDA-Public Use
  Company Number: 2006BI005429

PATIENT
  Age: 47 Year
  Sex: Female

DRUGS (5)
  1. AVONEX [Suspect]
     Indication: MULTIPLE SCLEROSIS
     Dosage: 30 UG; QW; IM
     Route: 030
     Dates: start: 20021005, end: 20030607
  2. AVONEX [Suspect]
     Indication: MULTIPLE SCLEROSIS
     Dosage: 30 UG;QW; IM
     Route: 030
     Dates: end: 20060218
  3. BACLOFEN [Concomitant]
  4. NEURONTIN [Concomitant]
  5. AVONEX [Suspect]
     Indication: MULTIPLE SCLEROSIS
     Dosage: 30 UG;QW; IM
     Route: 030
     Dates: start: 20060225

REACTIONS (6)
  - ASCITES [None]
  - PLEURAL EFFUSION [None]
  - SPLEEN DISORDER [None]
  - SPLENIC HAEMORRHAGE [None]
  - SPLENIC RUPTURE [None]
  - THROMBOSIS [None]
